FAERS Safety Report 19091696 (Version 3)
Quarter: 2021Q4

REPORT INFORMATION
  Report Type: Spontaneous
  Country: JP (occurrence: JP)
  Receive Date: 20210405
  Receipt Date: 20211118
  Transmission Date: 20220303
  Serious: Yes (Death, Other)
  Sender: FDA-Public Use
  Company Number: JP-PFIZER INC-2021341385

PATIENT
  Age: 74 Year
  Sex: Female
  Weight: 35.7 kg

DRUGS (3)
  1. LORBRENA [Suspect]
     Active Substance: LORLATINIB
     Indication: Non-small cell lung cancer
     Dosage: 100 MG, 1X/DAY
     Route: 048
     Dates: start: 20210318, end: 20210319
  2. LANSOPRAZOLE [Concomitant]
     Active Substance: LANSOPRAZOLE
     Indication: Gastric ulcer
     Dosage: 15 MG, 1X/DAY
     Route: 048
     Dates: start: 20201225, end: 20210326
  3. ATORVASTATIN [Concomitant]
     Active Substance: ATORVASTATIN
     Indication: Dyslipidaemia
     Dosage: 10 MG, 1X/DAY
     Route: 048
     Dates: start: 20201223, end: 20210326

REACTIONS (3)
  - Neoplasm progression [Fatal]
  - Cerebral infarction [Unknown]
  - Thrombophlebitis migrans [Unknown]

NARRATIVE: CASE EVENT DATE: 20210319
